FAERS Safety Report 16910090 (Version 2)
Quarter: 2019Q4

REPORT INFORMATION
  Report Type: Report from Study
  Country: US (occurrence: US)
  Receive Date: 20191011
  Receipt Date: 20191115
  Transmission Date: 20200122
  Serious: Yes (Other)
  Sender: FDA-Public Use
  Company Number: US-JNJFOC-20191014481

PATIENT
  Sex: Female

DRUGS (10)
  1. IMBRUVICA [Suspect]
     Active Substance: IBRUTINIB
     Indication: CHRONIC LYMPHOCYTIC LEUKAEMIA
     Dosage: 420 MG, QD
     Route: 048
     Dates: start: 20170417, end: 20170615
  2. IMBRUVICA [Suspect]
     Active Substance: IBRUTINIB
     Dosage: 70 MG,QD
     Route: 048
     Dates: start: 20190821
  3. IMBRUVICA [Suspect]
     Active Substance: IBRUTINIB
     Dosage: 70 MG, QD
     Route: 048
     Dates: start: 20180821
  4. IMBRUVICA [Suspect]
     Active Substance: IBRUTINIB
     Indication: CHRONIC LYMPHOCYTIC LEUKAEMIA
     Dosage: 140 MG,QD
     Route: 048
     Dates: start: 20180523, end: 20180820
  5. ATIVAN [Concomitant]
     Active Substance: LORAZEPAM
  6. VITAMIN B12 [Concomitant]
     Active Substance: CYANOCOBALAMIN
  7. IMBRUVICA [Suspect]
     Active Substance: IBRUTINIB
     Dosage: 140 MG, QD
     Route: 048
     Dates: start: 20180117, end: 20180522
  8. IMBRUVICA [Suspect]
     Active Substance: IBRUTINIB
     Dosage: 70 MG, QD
     Route: 048
     Dates: start: 20180821
  9. IMBRUVICA [Suspect]
     Active Substance: IBRUTINIB
     Dosage: 280 MG, QD
     Route: 048
     Dates: start: 20170616, end: 20180116
  10. IMBRUVICA [Suspect]
     Active Substance: IBRUTINIB
     Dosage: 140 MG,QD
     Route: 048
     Dates: start: 20180528

REACTIONS (3)
  - Brain stem infarction [Unknown]
  - Palpitations [Unknown]
  - Blepharospasm [Unknown]
